FAERS Safety Report 12064634 (Version 4)
Quarter: 2016Q1

REPORT INFORMATION
  Report Type: Report from Study
  Country: CH (occurrence: CH)
  Receive Date: 20160210
  Receipt Date: 20160321
  Transmission Date: 20160526
  Serious: Yes (Other)
  Sender: FDA-Public Use
  Company Number: CH-ABBVIE-16P-151-1541144-00

PATIENT
  Sex: Male

DRUGS (1)
  1. DUODOPA [Suspect]
     Active Substance: CARBIDOPA\LEVODOPA
     Indication: PRODUCT USED FOR UNKNOWN INDICATION
     Dosage: MD 9ML; CD DAY 3.1ML/H; CD NIGHT: 2.2ML/H; ED 1ML
     Route: 050
     Dates: start: 20141103

REACTIONS (7)
  - Haemorrhage [Unknown]
  - Device connection issue [Unknown]
  - Stoma site hypergranulation [Unknown]
  - Device dislocation [Recovered/Resolved]
  - Stoma site haemorrhage [Unknown]
  - Excessive granulation tissue [Unknown]
  - Device dislocation [Unknown]
